FAERS Safety Report 25939714 (Version 2)
Quarter: 2025Q4

REPORT INFORMATION
  Report Type: Spontaneous
  Country: JP (occurrence: JP)
  Receive Date: 20251020
  Receipt Date: 20251229
  Transmission Date: 20260118
  Serious: Yes (Other)
  Sender: ALEXION PHARMACEUTICALS
  Company Number: JP-ASTRAZENECA-202510JPN005497JP

PATIENT
  Age: 8 Decade
  Sex: Female

DRUGS (1)
  1. IMFINZI [Suspect]
     Active Substance: DURVALUMAB
     Indication: Bile duct cancer
     Dosage: 3 COURSES
     Route: 065

REACTIONS (3)
  - Femur fracture [Unknown]
  - Cholangitis [Unknown]
  - Fall [Unknown]
